FAERS Safety Report 20608713 (Version 4)
Quarter: 2023Q2

REPORT INFORMATION
  Report Type: Report from Study
  Country: US (occurrence: US)
  Receive Date: 20220317
  Receipt Date: 20230613
  Transmission Date: 20230721
  Serious: Yes (Hospitalization)
  Sender: FDA-Public Use
  Company Number: US-PFIZER INC-202200385321

PATIENT
  Age: 16 Year
  Sex: Male
  Weight: 69.2 kg

DRUGS (11)
  1. VINCRISTINE SULFATE [Suspect]
     Active Substance: VINCRISTINE SULFATE
     Indication: Acute lymphocytic leukaemia
     Dosage: 22 MG, DAYS 15,22,43,50
     Route: 042
     Dates: start: 20211214, end: 20220222
  2. VINCRISTINE SULFATE [Suspect]
     Active Substance: VINCRISTINE SULFATE
     Dosage: 22 MG, DAYS 15,22,43,50
     Route: 042
     Dates: start: 20220301
  3. CYTARABINE [Suspect]
     Active Substance: CYTARABINE
     Indication: Acute lymphocytic leukaemia
     Dosage: 145 MG, DAYS 29-42
     Route: 042
     Dates: start: 20211214
  4. METHOTREXATE SODIUM [Suspect]
     Active Substance: METHOTREXATE SODIUM
     Indication: Acute lymphocytic leukaemia
     Dosage: 15 MG, DAYS 1,8,15,22
     Route: 037
     Dates: start: 20211214, end: 20220222
  5. METHOTREXATE SODIUM [Suspect]
     Active Substance: METHOTREXATE SODIUM
     Dosage: 15 MG, DAYS 1,8,15,22
     Route: 037
     Dates: start: 20220301
  6. CYCLOPHOSPHAMIDE [Suspect]
     Active Substance: CYCLOPHOSPHAMIDE
     Indication: Acute lymphocytic leukaemia
     Dosage: 1950 MG, ONCE (DAY 29)
     Route: 042
     Dates: start: 20211214
  7. RUXOLITINIB [Suspect]
     Active Substance: RUXOLITINIB
     Indication: Acute lymphocytic leukaemia
     Dosage: 95 MG, BID FOR 14 DAYS
     Route: 048
     Dates: start: 20211214, end: 20220222
  8. RUXOLITINIB [Suspect]
     Active Substance: RUXOLITINIB
     Dosage: 95 MG, BID FOR 14 DAYS
     Route: 048
     Dates: start: 20220301
  9. MERCAPTOPURINE [Suspect]
     Active Substance: MERCAPTOPURINE
     Indication: Acute lymphocytic leukaemia
     Dosage: 2.5 TABS FIVE DAYS PER WEEK / 2 TABS TWO DAYS PER WEEK
     Route: 048
     Dates: start: 20211214, end: 20220222
  10. MERCAPTOPURINE [Suspect]
     Active Substance: MERCAPTOPURINE
     Dosage: 2.5 TABS FIVE DAYS PER WEEK / 2 TABS TWO DAYS PER WEEK
     Route: 048
     Dates: start: 20220301
  11. PEGASPARGASE [Suspect]
     Active Substance: PEGASPARGASE
     Indication: Acute lymphocytic leukaemia
     Dosage: 3750 IU, ONCE
     Route: 042
     Dates: start: 20211215

REACTIONS (2)
  - Febrile neutropenia [Recovered/Resolved]
  - Fungal infection [Recovered/Resolved]

NARRATIVE: CASE EVENT DATE: 20220218
